FAERS Safety Report 24639614 (Version 3)
Quarter: 2025Q1

REPORT INFORMATION
  Report Type: Report from Study
  Country: US (occurrence: US)
  Receive Date: 20241119
  Receipt Date: 20250108
  Transmission Date: 20250409
  Serious: Yes (Other)
  Sender: SUNOVION
  Company Number: US-SUMITOMO PHARMA SWITZERLAND GMBH-2024SPA003440

PATIENT

DRUGS (4)
  1. ORGOVYX [Suspect]
     Active Substance: RELUGOLIX
     Indication: Prostate cancer
     Dosage: 120 MG, QD
     Route: 048
     Dates: start: 20240913
  2. TROSPIUM [Concomitant]
     Active Substance: TROSPIUM
     Indication: Hypertonic bladder
     Route: 065
  3. OZEMPIC [Concomitant]
     Active Substance: SEMAGLUTIDE
     Indication: Weight abnormal
     Route: 065
  4. OZEMPIC [Concomitant]
     Active Substance: SEMAGLUTIDE
     Indication: Diabetes mellitus

REACTIONS (10)
  - Diabetes mellitus [Recovering/Resolving]
  - Cold sweat [Unknown]
  - Ventricular extrasystoles [Unknown]
  - Stress [Unknown]
  - Hypertonic bladder [Unknown]
  - Weight abnormal [Unknown]
  - Hypertension [Recovering/Resolving]
  - Hot flush [Unknown]
  - Incorrect dose administered [Unknown]
  - Product dose omission issue [Unknown]
